FAERS Safety Report 5467304-5 (Version None)
Quarter: 2007Q3

REPORT INFORMATION
  Report Type: 
  Country: None (occurrence: None)
  Receive Date: 20070925
  Receipt Date: 20070919
  Transmission Date: 20080115
  Serious: Yes (Hospitalization, Other)
  Sender: FDA-Public Use
  Company Number: US-PFIZER INC-2006112335

PATIENT
  Sex: Male
  Weight: 104.3 kg

DRUGS (4)
  1. CELEBREX [Suspect]
     Indication: PAIN
     Dates: start: 20001214, end: 20030401
  2. BEXTRA [Suspect]
     Indication: PAIN
     Dates: start: 20020606
  3. VIOXX [Suspect]
     Indication: ARTHRITIS
     Route: 048
  4. LIPITOR [Concomitant]

REACTIONS (2)
  - BRAIN DAMAGE [None]
  - CEREBROVASCULAR ACCIDENT [None]
